FAERS Safety Report 9436184 (Version 4)
Quarter: 2014Q2

REPORT INFORMATION
  Report Type: Spontaneous
  Country: US (occurrence: US)
  Receive Date: 20130801
  Receipt Date: 20140529
  Transmission Date: 20141212
  Serious: Yes (Other)
  Sender: FDA-Public Use
  Company Number: US-RB-056742-13

PATIENT
  Age: 26 Year
  Sex: Female
  Weight: 76 kg

DRUGS (3)
  1. SUBOXONE TABLET [Suspect]
     Indication: DRUG DEPENDENCE
     Dosage: WAS PRESCRIBED 16 MG DAILY, BUT SOMETIMES TOOK 8MG DAILY
     Dates: start: 2010
  2. SUBOXONE FILM [Suspect]
     Indication: DRUG DEPENDENCE
     Dosage: PRESCRIBED DOSE WAS 16 MG DAILY, SOMETIMES TOOK 8 MG DAILY.
     Route: 060
     Dates: start: 2010
  3. NICOTINE [Concomitant]
     Indication: NICOTINE DEPENDENCE
     Dosage: 20 CIGARETTES DAILY
     Route: 055
     Dates: start: 200006

REACTIONS (8)
  - Underdose [Recovered/Resolved]
  - Maternal exposure during pregnancy [Recovered/Resolved]
  - Weight decreased [Recovered/Resolved]
  - Pre-eclampsia [Recovered/Resolved]
  - Gestational diabetes [Recovered/Resolved]
  - Gestational hypertension [Recovered/Resolved]
  - Premature labour [Recovered/Resolved]
  - Premature delivery [Recovered/Resolved]
